FAERS Safety Report 17700346 (Version 1)
Quarter: 2020Q2

REPORT INFORMATION
  Report Type: Spontaneous
  Country: BR (occurrence: BR)
  Receive Date: 20200423
  Receipt Date: 20200423
  Transmission Date: 20200714
  Serious: Yes (Hospitalization)
  Sender: FDA-Public Use
  Company Number: BR-BAXTER-2020BAX008300

PATIENT
  Age: 64 Year
  Sex: Male
  Weight: 70 kg

DRUGS (18)
  1. GENUXAL [Suspect]
     Active Substance: CYCLOPHOSPHAMIDE
     Indication: GLIOBLASTOMA
     Dosage: FIRST CHEMOTHERAPY CYCLE, ANTINEOPLASTIC THERAPY
     Route: 042
     Dates: start: 20200128
  2. FAULDOXO [Suspect]
     Active Substance: DOXORUBICIN HYDROCHLORIDE
     Indication: METASTASES TO BONE
     Dosage: PER CYCLE, SECOND CHEMOTHERAPY CYCLE (TOTAL DOSE: 109.76 MG), ANTINEOPLASTIC THERAPY
     Route: 042
     Dates: start: 20200227
  3. GENUXAL [Suspect]
     Active Substance: CYCLOPHOSPHAMIDE
     Indication: METASTASES TO BONE MARROW
  4. GENUXAL [Suspect]
     Active Substance: CYCLOPHOSPHAMIDE
     Indication: METASTASES TO BONE
     Dosage: PER CYCLE, SECOND CHEMOTHERAPY CYCLE (TOTAL DOSE: 2195.11 MG), ANTINEOPLASTIC THERAPY
     Route: 042
     Dates: start: 20200227
  5. CLORETO DE S?DIO - BAXTER [Suspect]
     Active Substance: SODIUM CHLORIDE
     Indication: MEDICATION DILUTION
     Route: 065
  6. FAULDOXO [Suspect]
     Active Substance: DOXORUBICIN HYDROCHLORIDE
     Indication: GLIOBLASTOMA
     Dosage: FIRST CHEMOTHERAPY CYCLE, ANTINEOPLASTIC THERAPY
     Route: 042
     Dates: start: 20200128
  7. FAULDOXO [Suspect]
     Active Substance: DOXORUBICIN HYDROCHLORIDE
     Indication: METASTASES TO BONE MARROW
     Dosage: PER CYCLE, SECOND CHEMOTHERAPY CYCLE (TOTAL DOSE: 109.76 MG), ANTINEOPLASTIC THERAPY
     Route: 042
     Dates: start: 20200227
  8. FAULDVINCRI [Suspect]
     Active Substance: VINCRISTINE SULFATE
     Indication: METASTASES TO BONE MARROW
  9. FAULDOXO [Suspect]
     Active Substance: DOXORUBICIN HYDROCHLORIDE
     Dosage: PER CYCLE, SECOND CHEMOTHERAPY CYCLE (TOTAL DOSE: 109.76 MG), ANTINEOPLASTIC THERAPY
     Route: 042
     Dates: start: 20200227
  10. PREGABALIN. [Concomitant]
     Active Substance: PREGABALIN
     Indication: PRODUCT USED FOR UNKNOWN INDICATION
     Dosage: PER DAY
     Route: 065
  11. MIRTAZAPINE. [Concomitant]
     Active Substance: MIRTAZAPINE
     Indication: PRODUCT USED FOR UNKNOWN INDICATION
     Route: 065
  12. GENUXAL [Suspect]
     Active Substance: CYCLOPHOSPHAMIDE
     Indication: METASTASES TO BONE MARROW
  13. GENUXAL [Suspect]
     Active Substance: CYCLOPHOSPHAMIDE
     Indication: METASTASES TO BONE
     Dosage: PER CYCLE, SECOND CHEMOTHERAPY CYCLE (TOTAL DOSE: 2195.11 MG), ANTINEOPLASTIC THERAPY
     Route: 042
     Dates: start: 20200227
  14. STERILE WATER [Suspect]
     Active Substance: WATER
     Indication: MEDICATION DILUTION
     Route: 065
  15. FAULDVINCRI [Suspect]
     Active Substance: VINCRISTINE SULFATE
     Indication: GLIOBLASTOMA
     Dosage: FIRST CHEMOTHERAPY CYCLE, ANTINEOPLASTIC THERAPY
     Route: 042
     Dates: start: 20200128
  16. FAULDVINCRI [Suspect]
     Active Substance: VINCRISTINE SULFATE
     Indication: METASTASES TO BONE
     Dosage: PER CYCLE, SECOND CHEMOTHERAPY CYCLE, ANTINEOPLASTIC THERAPY
     Route: 042
     Dates: start: 20200227
  17. TYLEX [Concomitant]
     Indication: PRODUCT USED FOR UNKNOWN INDICATION
     Route: 065
  18. GENUXAL [Suspect]
     Active Substance: CYCLOPHOSPHAMIDE
     Indication: GLIOBLASTOMA
     Dosage: FIRST CHEMOTHERAPY CYCLE, ANTINEOPLASTIC THERAPY
     Route: 042
     Dates: start: 20200128

REACTIONS (4)
  - Discomfort [Recovered/Resolved]
  - Neutropenia [Recovered/Resolved]
  - Vomiting [Recovered/Resolved]
  - Thrombocytopenia [Recovered/Resolved]

NARRATIVE: CASE EVENT DATE: 20200309
